FAERS Safety Report 6435518-3 (Version None)
Quarter: 2009Q4

REPORT INFORMATION
  Report Type: 
  Country: None (occurrence: None)
  Receive Date: 20091111
  Receipt Date: 20091103
  Transmission Date: 20100525
  Serious: Yes (Hospitalization)
  Sender: FDA-Public Use
  Company Number: US-BIOGENIDEC-2008BI010242

PATIENT
  Age: 38 Year
  Sex: Female

DRUGS (2)
  1. AVONEX [Suspect]
     Indication: MULTIPLE SCLEROSIS
     Route: 030
     Dates: start: 20070825, end: 20090201
  2. AVONEX [Suspect]
     Route: 030
     Dates: start: 20090911

REACTIONS (3)
  - ANOVULATORY CYCLE [None]
  - ENDOMETRIAL HYPERPLASIA [None]
  - OESTROGENIC EFFECT [None]
